FAERS Safety Report 6967447-0 (Version None)
Quarter: 2010Q3

REPORT INFORMATION
  Report Type: 
  Country: None (occurrence: None)
  Receive Date: 20100907
  Receipt Date: 20100901
  Transmission Date: 20110219
  Serious: Yes (Death)
  Sender: FDA-Public Use
  Company Number: PHHY2010MX57978

PATIENT
  Age: 83 Year
  Sex: Male

DRUGS (1)
  1. RASILEZ HCT [Suspect]
     Indication: HYPERTENSION
     Dosage: 1 TABLET (150/12.5 MG) DAILY
     Route: 048
     Dates: start: 20091201

REACTIONS (1)
  - RESPIRATORY FAILURE [None]
